FAERS Safety Report 4318606-7 (Version None)
Quarter: 2004Q1

REPORT INFORMATION
  Report Type: 
  Country: None (occurrence: None)
  Receive Date: 20040317
  Receipt Date: 20040304
  Transmission Date: 20041129
  Serious: Yes (Other)
  Sender: FDA-Public Use
  Company Number: 2004016124

PATIENT
  Sex: Male

DRUGS (2)
  1. SUDAFED NON-DRYING SINUS (GUAIFENESIN, PSEUDOEPHEDRINE) [Suspect]
     Dosage: ORAL
     Route: 048
  2. VITAMINS NOS (VITAMINS NOS) [Concomitant]

REACTIONS (1)
  - EPISTAXIS [None]
